FAERS Safety Report 4356373-1 (Version None)
Quarter: 2004Q2

REPORT INFORMATION
  Report Type: 
  Country: None (occurrence: None)
  Receive Date: 20040506
  Receipt Date: 20040426
  Transmission Date: 20050107
  Serious: Yes (Other)
  Sender: FDA-Public Use
  Company Number: US-JNJFOC-20040405488

PATIENT
  Age: 71 Year
  Sex: Female
  Weight: 72.5755 kg

DRUGS (10)
  1. INFLIXIMAB (INFLIXIMAB, RECOMBINANT) LYOPHILIZED POWDER [Suspect]
     Indication: RHEUMATOID ARTHRITIS
     Dosage: INTRAVENOUS
     Route: 042
     Dates: start: 20011004
  2. METHOTREXATE [Concomitant]
  3. CELEBREX [Concomitant]
  4. ZESTRIL [Concomitant]
  5. LIPITOR [Concomitant]
  6. LEVOXYL [Concomitant]
  7. FOLIC ACID [Concomitant]
  8. MAXALT [Concomitant]
  9. TAMOXIFEN (TAMOXIFEN) [Concomitant]
  10. FEMARA [Concomitant]

REACTIONS (2)
  - BASAL CELL CARCINOMA [None]
  - RECURRENT CANCER [None]
